FAERS Safety Report 9553707 (Version 1)
Quarter: 2013Q3

REPORT INFORMATION
  Report Type: Spontaneous
  Country: US (occurrence: None)
  Receive Date: 20130924
  Receipt Date: 20130924
  Transmission Date: 20140515
  Serious: No
  Sender: FDA-Public Use
  Company Number: None

PATIENT
  Age: 74 Year
  Sex: Male
  Weight: 88.45 kg

DRUGS (1)
  1. AZATHIOPRINE [Suspect]
     Indication: CROHN^S DISEASE
     Dosage: 2 TABLETS
     Route: 048
     Dates: start: 20130803, end: 20130816

REACTIONS (8)
  - Nausea [None]
  - Vomiting [None]
  - Pyrexia [None]
  - Chills [None]
  - Arthropathy [None]
  - Arthralgia [None]
  - Joint swelling [None]
  - Urticaria [None]
